FAERS Safety Report 23343235 (Version 1)
Quarter: 2023Q4

REPORT INFORMATION
  Report Type: Spontaneous
  Country: US (occurrence: US)
  Receive Date: 20231227
  Receipt Date: 20231227
  Transmission Date: 20240109
  Serious: No
  Sender: FDA-Public Use
  Company Number: US-UPSHER-SMITH LABORATORIES, LLC-2023USL00094

PATIENT
  Sex: Female
  Weight: 68.027 kg

DRUGS (2)
  1. KLOR-CON M [Suspect]
     Active Substance: POTASSIUM CHLORIDE
     Indication: Diuretic therapy
     Dosage: 80 MEQ (4 TABLETS, ALL AT ONCE) IN THE EVENING OR DIVIDED INTO 2 DOSES OF 40 MEQ (2 TABLETS), IN THE
     Route: 048
  2. FUROSEMIDE [Concomitant]
     Active Substance: FUROSEMIDE

REACTIONS (2)
  - Foreign body in throat [Not Recovered/Not Resolved]
  - Product use complaint [Not Recovered/Not Resolved]
